FAERS Safety Report 7085140-3 (Version None)
Quarter: 2010Q4

REPORT INFORMATION
  Report Type: 
  Country: None (occurrence: None)
  Receive Date: 20101028
  Receipt Date: 20101021
  Transmission Date: 20110411
  Serious: Yes (Hospitalization, Other)
  Sender: FDA-Public Use
  Company Number: 2010SP038557

PATIENT
  Age: 30 Year
  Sex: Female
  Weight: 86.1834 kg

DRUGS (9)
  1. NUVARING [Suspect]
     Indication: ACNE
     Dates: start: 20020101, end: 20080101
  2. NUVARING [Suspect]
     Indication: CONTRACEPTION
     Dates: start: 20020101, end: 20080101
  3. NUVARING [Suspect]
     Indication: MENSTRUATION IRREGULAR
     Dates: start: 20020101, end: 20080101
  4. WELLBUTRIN [Concomitant]
  5. ZOLOFT [Concomitant]
  6. HERBAL BALANCE [Concomitant]
  7. METABOLIZERS (HERBAL PREPARATION) [Concomitant]
  8. PRILOSEC [Concomitant]
  9. ASPIRIN [Concomitant]

REACTIONS (3)
  - DEEP VEIN THROMBOSIS [None]
  - MYALGIA [None]
  - OVARIAN CYST [None]
